FAERS Safety Report 17909220 (Version 1)
Quarter: 2020Q2

REPORT INFORMATION
  Report Type: Report from Study
  Country: US (occurrence: US)
  Receive Date: 20200617
  Receipt Date: 20200617
  Transmission Date: 20200714
  Serious: Yes (Death)
  Sender: FDA-Public Use
  Company Number: US-RETROPHIN, INC.-2020RTN00063

PATIENT
  Age: 4 Month
  Sex: Male

DRUGS (1)
  1. CHOLIC ACID [Suspect]
     Active Substance: CHOLIC ACID
     Indication: INBORN ERROR IN PRIMARY BILE ACID SYNTHESIS
     Dosage: 50 MG, 1X/DAY
     Dates: start: 20200312

REACTIONS (1)
  - Death [Fatal]

NARRATIVE: CASE EVENT DATE: 20200529
